FAERS Safety Report 17021480 (Version 1)
Quarter: 2019Q4

REPORT INFORMATION
  Report Type: Spontaneous
  Country: US (occurrence: US)
  Receive Date: 20191111
  Receipt Date: 20191111
  Transmission Date: 20200122
  Serious: Yes (Death)
  Sender: FDA-Public Use
  Company Number: None

PATIENT
  Age: 49 Year
  Sex: Female

DRUGS (7)
  1. GLEOSTINE [Suspect]
     Active Substance: LOMUSTINE
     Indication: BRAIN NEOPLASM MALIGNANT
     Dosage: ?          OTHER FREQUENCY:ONCE FOR 1 DOSE.;?
     Route: 048
     Dates: start: 20190705
  2. MORPHINE [Concomitant]
     Active Substance: MORPHINE
  3. LORAZEPAM. [Concomitant]
     Active Substance: LORAZEPAM
  4. TYLENOL [Concomitant]
     Active Substance: ACETAMINOPHEN
  5. LEVETIRACETA [Concomitant]
  6. KEPPRA [Concomitant]
     Active Substance: LEVETIRACETAM
  7. ONDANSETRON [Suspect]
     Active Substance: ONDANSETRON
     Indication: BRAIN NEOPLASM MALIGNANT
     Route: 048
     Dates: start: 20190303

REACTIONS (1)
  - Death [None]
